FAERS Safety Report 17213402 (Version 3)
Quarter: 2020Q3

REPORT INFORMATION
  Report Type: Spontaneous
  Country: CA (occurrence: CA)
  Receive Date: 20191230
  Receipt Date: 20200824
  Transmission Date: 20201102
  Serious: Yes (Hospitalization)
  Sender: FDA-Public Use
  Company Number: CA-PFIZER INC-2019552050

PATIENT
  Age: 74 Year
  Sex: Male

DRUGS (22)
  1. SOMAVERT [Suspect]
     Active Substance: PEGVISOMANT
     Dosage: 10 MG, 5 TIMES/WEEK
     Route: 058
  2. RIVA ZOPICLONE [Concomitant]
     Dosage: 7.5 UNK, 1X/DAY (AT BEDTIME)
     Route: 065
  3. NEILMED NASADROPS [Concomitant]
     Dosage: UNK, AS NEEDED
     Route: 065
  4. CO LATANOPROST [Concomitant]
     Dosage: UNK
     Route: 065
  5. ADVAIR HFA [Concomitant]
     Active Substance: FLUTICASONE PROPIONATE\SALMETEROL XINAFOATE
     Dosage: 2 INH/DAY, 1X/DAY
     Route: 055
  6. AMIODARONE TEVA [AMIODARONE HYDROCHLORIDE] [Concomitant]
     Active Substance: AMIODARONE HYDROCHLORIDE
     Dosage: 200 MG, 1X/DAY
     Route: 065
  7. SALBUTAMOL NOVOLIZ [Concomitant]
     Dosage: UNK, 4X/DAY (QID)
     Route: 065
  8. TAMSULOSIN [Concomitant]
     Active Substance: TAMSULOSIN
     Dosage: 0.4 MG, 1X/DAY
     Route: 065
  9. DOCUSATE [Concomitant]
     Active Substance: DOCUSATE
     Dosage: UNK
     Route: 065
  10. MAVIK [Concomitant]
     Active Substance: TRANDOLAPRIL
     Dosage: 1 MG, 1X/DAY
     Route: 065
  11. CREON [Concomitant]
     Active Substance: PANCRELIPASE AMYLASE\PANCRELIPASE LIPASE\PANCRELIPASE PROTEASE
     Dosage: 25000 IU, 4X/MONTH
     Route: 065
  12. FUROSEMIDE. [Concomitant]
     Active Substance: FUROSEMIDE
     Dosage: UNK
     Route: 065
  13. XARELTO [Concomitant]
     Active Substance: RIVAROXABAN
     Dosage: 15 MG, UNK
     Route: 065
  14. CARVEDILOL. [Concomitant]
     Active Substance: CARVEDILOL
     Dosage: UNK
     Route: 065
  15. SALBUTAMOL NOVOLIZ [Concomitant]
     Dosage: UNK, AS NEEDED (EVERY DAY)
  16. PRO LORAZEPAM [Concomitant]
     Dosage: UNK, AS NEEDED (AT BEDTIME)
     Route: 065
  17. SOMAVERT [Suspect]
     Active Substance: PEGVISOMANT
     Indication: ACROMEGALY
     Dosage: 10 MG, 5 TIMES/WEEK
     Route: 058
     Dates: start: 20090716, end: 20191218
  18. SERTRALINE [Concomitant]
     Active Substance: SERTRALINE HYDROCHLORIDE
     Dosage: 150 MG, 1X/DAY
     Route: 065
  19. SANDOSTATIN [Concomitant]
     Active Substance: OCTREOTIDE ACETATE
     Dosage: 20 MG, 6 TIMES/WEEK
     Route: 065
  20. PMS FERROUS SULFATE [Concomitant]
     Dosage: UNK
     Route: 065
  21. RIVA ATORVASTATIN [Concomitant]
     Dosage: UNK
     Route: 065
  22. ADVAIR HFA [Concomitant]
     Active Substance: FLUTICASONE PROPIONATE\SALMETEROL XINAFOATE
     Dosage: UNK, 2X/DAY (1 INHALATION)

REACTIONS (2)
  - Off label use [Unknown]
  - Headache [Not Recovered/Not Resolved]

NARRATIVE: CASE EVENT DATE: 20191214
